FAERS Safety Report 7100095-0 (Version None)
Quarter: 2010Q4

REPORT INFORMATION
  Report Type: 
  Country: None (occurrence: None)
  Receive Date: 20101112
  Receipt Date: 20091202
  Transmission Date: 20110411
  Serious: No
  Sender: FDA-Public Use
  Company Number: A0832882A

PATIENT
  Age: 50 Year
  Sex: Male

DRUGS (2)
  1. COREG [Suspect]
     Dosage: 12.5MG TWICE PER DAY
     Route: 048
  2. INSULIN [Concomitant]

REACTIONS (1)
  - DRUG ADMINISTRATION ERROR [None]
